FAERS Safety Report 11891115 (Version 3)
Quarter: 2016Q1

REPORT INFORMATION
  Report Type: Report from Study
  Country: US (occurrence: US)
  Receive Date: 20160106
  Receipt Date: 20160303
  Transmission Date: 20160526
  Serious: No
  Sender: FDA-Public Use
  Company Number: US-AMGEN-USASL2015140836

PATIENT
  Age: 10 Year
  Sex: Female
  Weight: 58.96 kg

DRUGS (2)
  1. ENBREL [Suspect]
     Active Substance: ETANERCEPT
     Indication: JUVENILE IDIOPATHIC ARTHRITIS
     Dosage: 25 MG, 2 TIMES/WK
     Route: 065
     Dates: start: 20151210
  2. ENBREL [Suspect]
     Active Substance: ETANERCEPT
     Dosage: UNK
     Route: 065

REACTIONS (10)
  - Abdominal discomfort [Unknown]
  - Flushing [Unknown]
  - Pain in jaw [Unknown]
  - Oropharyngeal pain [Recovered/Resolved]
  - Viral infection [Unknown]
  - Abdominal pain upper [Recovered/Resolved]
  - Malaise [Unknown]
  - Headache [Unknown]
  - Feeling abnormal [Unknown]
  - Diarrhoea [Unknown]

NARRATIVE: CASE EVENT DATE: 20151229
